FAERS Safety Report 15773024 (Version 1)
Quarter: 2018Q4

REPORT INFORMATION
  Report Type: Spontaneous
  Country: US (occurrence: US)
  Receive Date: 20181228
  Receipt Date: 20181228
  Transmission Date: 20190205
  Serious: No
  Sender: FDA-Public Use
  Company Number: US-TEVA-2018-US-991334

PATIENT
  Sex: Male

DRUGS (1)
  1. CLONAZEPAM (ACTAVIS) [Suspect]
     Active Substance: CLONAZEPAM
     Route: 065

REACTIONS (5)
  - Anxiety [Unknown]
  - Tremor [Unknown]
  - Withdrawal syndrome [Unknown]
  - Hyperhidrosis [Unknown]
  - Palpitations [Unknown]
